FAERS Safety Report 21188259 (Version 3)
Quarter: 2023Q2

REPORT INFORMATION
  Report Type: Spontaneous
  Country: PT (occurrence: PT)
  Receive Date: 20220809
  Receipt Date: 20230424
  Transmission Date: 20230722
  Serious: Yes (Other)
  Sender: FDA-Public Use
  Company Number: PT-INFARMED-T202205-246

PATIENT
  Age: 82 Year
  Sex: Male
  Weight: 79 kg

DRUGS (23)
  1. FUROSEMIDE [Suspect]
     Active Substance: FUROSEMIDE
     Indication: Cardiac failure
     Dosage: 40 MILLIGRAM, ONCE A DAY (1 CP FASTING)
     Route: 048
     Dates: start: 20220509
  2. FUROSEMIDE [Suspect]
     Active Substance: FUROSEMIDE
     Dosage: 40 MILLIGRAM, ONCE A DAY (1 CP FASTING)
     Route: 048
     Dates: start: 20220420
  3. SPIRONOLACTONE [Suspect]
     Active Substance: SPIRONOLACTONE
     Indication: Cardiac failure
     Dosage: 25 MILLIGRAM, ONCE A DAY (1 CP FASTING)
     Route: 048
     Dates: end: 20220317
  4. SPIRONOLACTONE [Suspect]
     Active Substance: SPIRONOLACTONE
     Dosage: 37.5 MILLIGRAM, ONCE A DAY (1 CP FASTING)
     Route: 048
     Dates: start: 20220317, end: 20220420
  5. SPIRONOLACTONE [Suspect]
     Active Substance: SPIRONOLACTONE
     Dosage: UNK (1 CP FASTING)
     Route: 048
     Dates: start: 20220509
  6. VELTASSA [Suspect]
     Active Substance: PATIROMER
     Indication: Hyperkalaemia
     Dosage: 25.2 MILLIGRAM, ONCE A DAY (25.2G / DAY (3 SACHETS OF 8.4G))
     Route: 048
     Dates: start: 20201203, end: 20220225
  7. VELTASSA [Suspect]
     Active Substance: PATIROMER
     Dosage: 16.8 MILLIGRAM, ONCE A DAY (16.8G / DAY (2 SACHETS OF 8.4G))
     Route: 048
     Dates: start: 20220225, end: 20220420
  8. ALLOPURINOL [Concomitant]
     Active Substance: ALLOPURINOL
     Indication: Product used for unknown indication
     Dosage: 50 MILLIGRAM, ONCE A DAY (HALF COMP FOR BREAKFAST)
     Route: 048
  9. BISOPROLOL [Concomitant]
     Active Substance: BISOPROLOL
     Indication: Product used for unknown indication
     Dosage: 5 MILLIGRAM, ONCE A DAY (1CP FOR BREAKFAST)
     Route: 048
  10. CALCIUM CARBONATE [Concomitant]
     Active Substance: CALCIUM CARBONATE
     Indication: Product used for unknown indication
     Dosage: UNK (1 PC FOR BREAKFAST)
     Route: 048
  11. DOLUTEGRAVIR [Concomitant]
     Active Substance: DOLUTEGRAVIR
     Indication: Product used for unknown indication
     Dosage: 50 MILLIGRAM, ONCE A DAY (1 PC FOR BREAKFAST)
     Route: 048
  12. ENTRESTO [Concomitant]
     Active Substance: SACUBITRIL\VALSARTAN
     Indication: Product used for unknown indication
     Dosage: 1 ARBITRARY UNITS, TWO TIMES A DAY (1CP AT BREAKFAST + 1CP AT DINNER)
     Route: 048
  13. HUMALOG [Concomitant]
     Active Substance: INSULIN LISPRO
     Indication: Product used for unknown indication
     Dosage: UNK (ACCORDING TO CAPILLARY BLOOD GLUCOSE)
     Route: 058
  14. INVOKANA [Concomitant]
     Active Substance: CANAGLIFLOZIN
     Indication: Product used for unknown indication
     Dosage: 100 MILLIGRAM, ONCE A DAY ( (1 CP TO SMALL LUNCH))
     Route: 048
  15. LAMIVUDINE [Concomitant]
     Active Substance: LAMIVUDINE
     Indication: Product used for unknown indication
     Dosage: 150 MILLIGRAM, ONCE A DAY (1 PC FOR BREAKFAST)
     Route: 048
  16. LANTUS [Concomitant]
     Active Substance: INSULIN GLARGINE
     Indication: Product used for unknown indication
     Dosage: 30 INTERNATIONAL UNIT, ONCE A DAY (30 UNITS FASTING)
     Route: 058
  17. LANTUS [Concomitant]
     Active Substance: INSULIN GLARGINE
     Dosage: 12 INTERNATIONAL UNIT, ONCE A DAY (12 UNITS AT BEDTIME)
     Route: 058
  18. LERCANIDIPINE [Concomitant]
     Active Substance: LERCANIDIPINE
     Indication: Product used for unknown indication
     Dosage: 10 MILLIGRAM, ONCE A DAY (1 CP AT DINNER)
     Route: 048
  19. OMEPRAZOLE [Concomitant]
     Active Substance: OMEPRAZOLE
     Indication: Product used for unknown indication
     Dosage: 20 MILLIGRAM, ONCE A DAY ( 1 CP FASTING)
     Route: 048
  20. PRAVASTATIN SODIUM [Concomitant]
     Active Substance: PRAVASTATIN SODIUM
     Indication: Product used for unknown indication
     Dosage: 20 MILLIGRAM, ONCE A DAY (1 CP AT DINNER)
     Route: 048
  21. CALCIUM\POLYSTYRENE [Concomitant]
     Active Substance: CALCIUM\POLYSTYRENE
     Indication: Product used for unknown indication
     Dosage: UNK (1 SCOOP TWICE A DAY, HAVING INCREASED THE DOSE ON 5/9/2022 TO 1 SCOOP TWICE A DAY)
     Route: 048
  22. TROMALYT [Concomitant]
     Active Substance: ASPIRIN
     Indication: Product used for unknown indication
     Dosage: 150 MILLIGRAM, ONCE A DAY (1 PC FOR BREAKFAST)
     Route: 048
  23. TRAZODONE HYDROCHLORIDE [Concomitant]
     Active Substance: TRAZODONE HYDROCHLORIDE
     Indication: Product used for unknown indication
     Dosage: 150 MILLIGRAM, ONCE A DAY  (1 CP BEFORE BED)
     Route: 048

REACTIONS (3)
  - Acute kidney injury [Not Recovered/Not Resolved]
  - Hyperkalaemia [Unknown]
  - Metabolic acidosis [Recovered/Resolved]

NARRATIVE: CASE EVENT DATE: 20220225
